FAERS Safety Report 15236833 (Version 1)
Quarter: 2018Q3

REPORT INFORMATION
  Report Type: Spontaneous
  Country: US (occurrence: US)
  Receive Date: 20180710
  Receipt Date: 20180710
  Transmission Date: 20181010
  Serious: Yes (Death, Disabling)
  Sender: FDA-Public Use
  Company Number: None

PATIENT
  Age: 49 Year
  Sex: Female

DRUGS (6)
  1. CANGRELOR [Suspect]
     Active Substance: CANGRELOR
     Indication: CORONARY ARTERY BYPASS
     Dosage: ?          OTHER FREQUENCY:CONTINUOUS INFUSIO;?
     Route: 041
  2. HEPARIN [Suspect]
     Active Substance: HEPARIN SODIUM
     Route: 041
     Dates: start: 20180630, end: 20180701
  3. PREGABALIN 75MG [Concomitant]
     Active Substance: PREGABALIN
     Dates: start: 20180630
  4. TYLENOL [Concomitant]
     Active Substance: ACETAMINOPHEN
     Dates: start: 20180701
  5. NITROGLYCERIN SL TABLET [Concomitant]
     Dates: start: 20180630
  6. NITROGLYCERIN INFUSION [Concomitant]
     Dates: start: 20180630

REACTIONS (3)
  - Subarachnoid haemorrhage [None]
  - Unresponsive to stimuli [None]
  - Brain herniation [None]

NARRATIVE: CASE EVENT DATE: 20180701
